FAERS Safety Report 4777077-7 (Version None)
Quarter: 2005Q3

REPORT INFORMATION
  Report Type: 
  Country: None (occurrence: None)
  Receive Date: 20050922
  Receipt Date: 20050922
  Transmission Date: 20060218
  Serious: Yes (Other)
  Sender: FDA-Public Use
  Company Number: None

PATIENT
  Sex: Female

DRUGS (1)
  1. DERMAREST SHAMPOO [Suspect]
     Indication: PSORIASIS
     Dates: start: 20050401, end: 20050401

REACTIONS (3)
  - ALOPECIA [None]
  - PHARMACEUTICAL PRODUCT COMPLAINT [None]
  - SEBORRHOEA [None]
